FAERS Safety Report 20508349 (Version 2)
Quarter: 2022Q1

REPORT INFORMATION
  Report Type: Spontaneous
  Country: IT (occurrence: IT)
  Receive Date: 20220223
  Receipt Date: 20220316
  Transmission Date: 20220423
  Serious: Yes (Other)
  Sender: FDA-Public Use
  Company Number: IT-ECUPHARMA-202200007

PATIENT
  Age: 14 Year
  Sex: Male

DRUGS (18)
  1. ARIPIPRAZOLE [Suspect]
     Active Substance: ARIPIPRAZOLE
     Indication: Behaviour disorder
     Dosage: 10 MILLIGRAM, QD, 10 MG DAILY
  2. ARIPIPRAZOLE [Suspect]
     Active Substance: ARIPIPRAZOLE
     Indication: Emotional disorder
     Dosage: 7 MG, PER DAY
  3. ARIPIPRAZOLE [Suspect]
     Active Substance: ARIPIPRAZOLE
     Indication: Abnormal behaviour
  4. ARIPIPRAZOLE [Suspect]
     Active Substance: ARIPIPRAZOLE
     Indication: Irritability
  5. ARIPIPRAZOLE [Suspect]
     Active Substance: ARIPIPRAZOLE
     Indication: Affect lability
  6. ARIPIPRAZOLE [Suspect]
     Active Substance: ARIPIPRAZOLE
     Indication: Irritability
  7. ARIPIPRAZOLE [Suspect]
     Active Substance: ARIPIPRAZOLE
     Indication: Irritability
     Dosage: 7 MILLIGRAM, QD
  8. ARIPIPRAZOLE [Suspect]
     Active Substance: ARIPIPRAZOLE
     Indication: Emotional disorder
     Dosage: 10 MILLIGRAM, QD
  9. ARIPIPRAZOLE [Suspect]
     Active Substance: ARIPIPRAZOLE
     Indication: Autism spectrum disorder
  10. ARIPIPRAZOLE [Suspect]
     Active Substance: ARIPIPRAZOLE
     Indication: Behaviour disorder
  11. ARIPIPRAZOLE [Suspect]
     Active Substance: ARIPIPRAZOLE
     Indication: Intellectual disability
  12. RISPERIDONE [Suspect]
     Active Substance: RISPERIDONE
     Indication: Abnormal behaviour
     Dosage: UNK
  13. RISPERIDONE [Suspect]
     Active Substance: RISPERIDONE
     Indication: Irritability
  14. RISPERIDONE [Suspect]
     Active Substance: RISPERIDONE
     Indication: Emotional disorder
  15. VALPROIC ACID [Concomitant]
     Active Substance: VALPROIC ACID
     Indication: Behaviour disorder
     Dosage: 20 MILLIGRAM/KILOGRAM, QD, 20 MG/KG DAILY
  16. VALPROIC ACID [Concomitant]
     Active Substance: VALPROIC ACID
     Indication: Partial seizures
  17. VALPROIC ACID [Concomitant]
     Active Substance: VALPROIC ACID
     Indication: Epilepsy
  18. TRIHEXYPHENIDYLUM [Concomitant]
     Indication: Product used for unknown indication
     Dosage: UNK

REACTIONS (5)
  - Oculogyric crisis [Unknown]
  - Product use in unapproved indication [Unknown]
  - Eye pain [Recovered/Resolved]
  - Anxiety [Recovered/Resolved]
  - Off label use [Unknown]
